FAERS Safety Report 6855844-3 (Version None)
Quarter: 2010Q2

REPORT INFORMATION
  Report Type: 
  Country: None (occurrence: None)
  Receive Date: 20100629
  Receipt Date: 20100323
  Transmission Date: 20101027
  Serious: No
  Sender: FDA-Public Use
  Company Number: US-WYE-H14322310

PATIENT
  Age: 55 Year
  Sex: Female

DRUGS (1)
  1. PRISTIQ [Suspect]
     Dosage: 100 MG 1X PER 1 DAY : ^TAPERING OFF

REACTIONS (4)
  - DRUG WITHDRAWAL SYNDROME [None]
  - HANGOVER [None]
  - UNEVALUABLE EVENT [None]
  - VISUAL IMPAIRMENT [None]
